FAERS Safety Report 5328982-4 (Version None)
Quarter: 2007Q2

REPORT INFORMATION
  Report Type: 
  Country: None (occurrence: None)
  Receive Date: 20070515
  Receipt Date: 20070508
  Transmission Date: 20071010
  Serious: Yes (Other)
  Sender: FDA-Public Use
  Company Number: S06-USA-04796-01

PATIENT
  Age: 68 Year
  Sex: Male

DRUGS (6)
  1. THYROID TAB [Suspect]
     Indication: HYPOTHYROIDISM
     Dosage: 120 MG QD PO
     Route: 048
     Dates: start: 19780501, end: 20060929
  2. THYROID TAB [Suspect]
     Indication: HYPOTHYROIDISM
     Dosage: 120 MG QD PO
     Route: 048
     Dates: start: 20061002, end: 20061108
  3. THYROID TAB [Suspect]
     Indication: HYPOTHYROIDISM
     Dosage: 120 MG PO
     Route: 048
     Dates: start: 20061214, end: 20070101
  4. THYROID TAB [Suspect]
     Indication: HYPOTHYROIDISM
     Dosage: 120 MG QD PO
     Route: 048
     Dates: start: 20070101, end: 20070101
  5. THYROID TAB [Suspect]
     Indication: HYPOTHYROIDISM
     Dosage: 120 MG PO
     Route: 048
     Dates: start: 20070101
  6. THYROID TAB [Suspect]
     Indication: HYPOTHYROIDISM
     Dosage: 60 MG PO
     Route: 048
     Dates: start: 20070101

REACTIONS (10)
  - BLOOD PRESSURE INCREASED [None]
  - DRUG DOSE OMISSION [None]
  - DRUG HYPERSENSITIVITY [None]
  - EXTRASYSTOLES [None]
  - PHARYNGEAL OEDEMA [None]
  - SALIVARY HYPERSECRETION [None]
  - STOMATITIS [None]
  - SWOLLEN TONGUE [None]
  - WEIGHT DECREASED [None]
  - WEIGHT FLUCTUATION [None]
